FAERS Safety Report 17030918 (Version 1)
Quarter: 2019Q4

REPORT INFORMATION
  Report Type: Spontaneous
  Country: US (occurrence: US)
  Receive Date: 20191113
  Receipt Date: 20191113
  Transmission Date: 20200122
  Serious: Yes (Other)
  Sender: FDA-Public Use
  Company Number: None

PATIENT
  Age: 11 Month
  Sex: Male
  Weight: 12.6 kg

DRUGS (1)
  1. LANNETT RANITIDINE SYRUP (ORAL SOLUTION, USP) NDC 54838-550-80 15MG/ML [Suspect]
     Active Substance: RANITIDINE
     Indication: GASTROOESOPHAGEAL REFLUX DISEASE
     Dosage: ?          QUANTITY:2.5 ML;?
     Route: 048
     Dates: start: 20180728, end: 20190228

REACTIONS (2)
  - Vomiting projectile [None]
  - Therapy change [None]

NARRATIVE: CASE EVENT DATE: 20181221
